FAERS Safety Report 17302708 (Version 1)
Quarter: 2020Q1

REPORT INFORMATION
  Report Type: Spontaneous
  Country: US (occurrence: US)
  Receive Date: 20200122
  Receipt Date: 20200122
  Transmission Date: 20200409
  Serious: No
  Sender: FDA-Public Use
  Company Number: US-ASTRAZENECA-2019SF88144

PATIENT
  Age: 28990 Day
  Sex: Female
  Weight: 61.2 kg

DRUGS (1)
  1. BEVESPI AEROSPHERE [Suspect]
     Active Substance: FORMOTEROL FUMARATE\GLYCOPYRROLATE
     Indication: CHRONIC OBSTRUCTIVE PULMONARY DISEASE
     Dosage: 9 MCG./ 4.8MCG. 2 PUFFS TWICE EACH DAY
     Route: 055

REACTIONS (4)
  - Device malfunction [Unknown]
  - Feeling abnormal [Recovered/Resolved]
  - Product dose omission [Recovered/Resolved]
  - Chronic obstructive pulmonary disease [Not Recovered/Not Resolved]

NARRATIVE: CASE EVENT DATE: 20191222
